FAERS Safety Report 20082634 (Version 1)
Quarter: 2021Q4

REPORT INFORMATION
  Report Type: Spontaneous
  Country: US (occurrence: None)
  Receive Date: 20211117
  Receipt Date: 20211117
  Transmission Date: 20220303
  Serious: No
  Sender: FDA-Public Use
  Company Number: None

PATIENT
  Age: 17 Year
  Sex: Male
  Weight: 63 kg

DRUGS (1)
  1. MONTELUKAST [Suspect]
     Active Substance: MONTELUKAST SODIUM
     Indication: Asthma
     Dates: end: 20211102

REACTIONS (8)
  - COVID-19 [None]
  - Depression [None]
  - Agitation [None]
  - Anxiety [None]
  - Vomiting [None]
  - Diarrhoea [None]
  - Feeding disorder [None]
  - Insomnia [None]

NARRATIVE: CASE EVENT DATE: 20211030
